FAERS Safety Report 4900189-1 (Version None)
Quarter: 2006Q1

REPORT INFORMATION
  Report Type: 
  Country: None (occurrence: None)
  Receive Date: 20060203
  Receipt Date: 20050725
  Transmission Date: 20060701
  Serious: No
  Sender: FDA-Public Use
  Company Number: US-GLAXOSMITHKLINE-A0567563A

PATIENT
  Age: 45 Year
  Sex: Male
  Weight: 64 kg

DRUGS (2)
  1. ARIXTRA [Suspect]
     Indication: DEEP VEIN THROMBOSIS
     Dosage: 7.5MG THREE TIMES PER DAY
     Route: 058
     Dates: start: 20050712, end: 20050714
  2. HEPARIN [Concomitant]
     Route: 042
     Dates: start: 20050723

REACTIONS (2)
  - MEDICATION ERROR [None]
  - OVERDOSE [None]
